FAERS Safety Report 15754324 (Version 1)
Quarter: 2018Q4

REPORT INFORMATION
  Report Type: Spontaneous
  Country: DE (occurrence: DE)
  Receive Date: 20181223
  Receipt Date: 20181223
  Transmission Date: 20190205
  Serious: Yes (Other)
  Sender: FDA-Public Use
  Company Number: DE-PROVELL PHARMACEUTICALS-2060531

PATIENT
  Sex: Female
  Weight: 66 kg

DRUGS (3)
  1. PETIBELLE [Concomitant]
     Active Substance: DROSPIRENONE\ETHINYL ESTRADIOL
     Dates: start: 201208, end: 201801
  2. EUTHYROX [Suspect]
     Active Substance: LEVOTHYROXINE SODIUM
     Indication: PRODUCT USED FOR UNKNOWN INDICATION
     Dates: start: 201604
  3. DESOGESTREL [Concomitant]
     Active Substance: DESOGESTREL
     Dates: start: 20180101, end: 20181113

REACTIONS (4)
  - Tension [Unknown]
  - Deep vein thrombosis [Unknown]
  - Asthenia [Unknown]
  - Weight abnormal [Unknown]

NARRATIVE: CASE EVENT DATE: 20181113
